FAERS Safety Report 19183761 (Version 1)
Quarter: 2021Q2

REPORT INFORMATION
  Report Type: Spontaneous
  Country: FR (occurrence: FR)
  Receive Date: 20210427
  Receipt Date: 20210427
  Transmission Date: 20210717
  Serious: Yes (Other)
  Sender: FDA-Public Use
  Company Number: FR-LUPIN PHARMACEUTICALS INC.-2021-05398

PATIENT
  Age: 50 Year
  Sex: Female

DRUGS (5)
  1. VALPROMIDE [Interacting]
     Active Substance: VALPROMIDE
     Indication: BIPOLAR DISORDER
     Dosage: 900 MILLIGRAM, QD
     Route: 065
     Dates: start: 2011, end: 2014
  2. RIFAMPIN. [Suspect]
     Active Substance: RIFAMPIN
     Indication: PULMONARY TUBERCULOSIS
     Dosage: UNK
     Route: 065
     Dates: start: 2013
  3. PYRAZINAMIDE. [Interacting]
     Active Substance: PYRAZINAMIDE
     Indication: PULMONARY TUBERCULOSIS
     Dosage: UNK
     Route: 065
     Dates: start: 2013
  4. VALPROMIDE [Interacting]
     Active Substance: VALPROMIDE
     Dosage: 1200 MILLIGRAM, QD
     Route: 065
     Dates: start: 2011, end: 2014
  5. ISONIAZID. [Interacting]
     Active Substance: ISONIAZID
     Indication: PULMONARY TUBERCULOSIS
     Dosage: UNK
     Route: 065
     Dates: start: 2013

REACTIONS (2)
  - Mania [Unknown]
  - Drug interaction [Unknown]

NARRATIVE: CASE EVENT DATE: 201402
